FAERS Safety Report 21297589 (Version 1)
Quarter: 2022Q3

REPORT INFORMATION
  Report Type: Spontaneous
  Country: US (occurrence: None)
  Receive Date: 20220902
  Receipt Date: 20220902
  Transmission Date: 20221027
  Serious: No
  Sender: FDA-Public Use
  Company Number: None

PATIENT
  Age: 66 Year
  Sex: Male

DRUGS (1)
  1. DUPILUMAB [Suspect]
     Active Substance: DUPILUMAB
     Indication: Asthma
     Route: 058
     Dates: start: 20220315, end: 20220719

REACTIONS (4)
  - Injection site reaction [None]
  - Injection site rash [None]
  - Injection site pruritus [None]
  - Reaction to excipient [None]

NARRATIVE: CASE EVENT DATE: 20220606
